FAERS Safety Report 5644267-0 (Version None)
Quarter: 2008Q1

REPORT INFORMATION
  Report Type: 
  Country: None (occurrence: None)
  Receive Date: 20080229
  Receipt Date: 20080222
  Transmission Date: 20080703
  Serious: Yes (Other)
  Sender: FDA-Public Use
  Company Number: HQWYE774503AUG04

PATIENT
  Sex: Female
  Weight: 77.18 kg

DRUGS (9)
  1. PREMPRO [Suspect]
     Indication: HOT FLUSH
     Dosage: UNKNOWN
     Dates: start: 19950101, end: 20010101
  2. PREMPRO [Suspect]
     Indication: OSTEOPOROSIS
  3. PREMPRO [Suspect]
     Indication: PROPHYLAXIS
  4. MEDROXYPROGESTERONE ACETATE [Suspect]
  5. VERAPAMIL [Concomitant]
  6. PREMARIN [Suspect]
     Dosage: UNKNOWN
     Dates: start: 19910101, end: 19950101
  7. PREMARIN [Suspect]
     Dosage: UNKNOWN
     Dates: start: 19990101
  8. PREMARIN [Suspect]
     Dosage: UNKNOWN
     Dates: start: 20000101
  9. PROVERA [Suspect]
     Dosage: UNKNOWN
     Dates: start: 19910101, end: 19950101

REACTIONS (16)
  - ANXIETY [None]
  - BREAST CANCER METASTATIC [None]
  - BREAST FIBROSIS [None]
  - BREAST NECROSIS [None]
  - CHOLELITHIASIS [None]
  - COLLAPSE OF LUNG [None]
  - DEPRESSION [None]
  - HEPATIC STEATOSIS [None]
  - INFECTION [None]
  - MASTOPTOSIS [None]
  - OESTROGEN RECEPTOR ASSAY POSITIVE [None]
  - POSTMASTECTOMY LYMPHOEDEMA SYNDROME [None]
  - PROGESTERONE RECEPTOR ASSAY POSITIVE [None]
  - RENAL CYST [None]
  - SCAR [None]
  - WOUND DEHISCENCE [None]
